FAERS Safety Report 9771334 (Version 2)
Quarter: 2013Q4

REPORT INFORMATION
  Report Type: Report from Study
  Country: FR (occurrence: FR)
  Receive Date: 20131218
  Receipt Date: 20131224
  Transmission Date: 20140711
  Serious: No
  Sender: FDA-Public Use
  Company Number: PHHY2013FR148043

PATIENT
  Age: 85 Year
  Sex: Female
  Weight: 53 kg

DRUGS (10)
  1. ACLASTA/ZOLEDRONATE [Suspect]
     Indication: OSTEOPOROTIC FRACTURE
     Dosage: UNK UKN, UNK
     Route: 042
     Dates: start: 201112
  2. ACLASTA/ZOLEDRONATE [Suspect]
     Dosage: UNK
     Route: 042
     Dates: start: 201212
  3. LEVOTHYROX [Concomitant]
     Dosage: 1 DF, QD
     Dates: start: 2000
  4. KARDEGIC [Concomitant]
     Dosage: UNK UKN, UNK
  5. CALCIDOSE [Concomitant]
     Dosage: UNK UKN, UNK
     Dates: start: 2011
  6. UVEDOSE [Concomitant]
     Dosage: UNK UKN, UNK
     Dates: start: 2011, end: 201203
  7. DOLIPRANE [Concomitant]
     Dosage: UNK UKN, UNK
     Dates: start: 2011, end: 2012
  8. MEGAMAG [Concomitant]
     Dosage: UNK UKN, UNK
     Dates: start: 2012, end: 201212
  9. VESICARE [Concomitant]
     Dosage: UNK UKN, UNK
     Dates: start: 201201
  10. TIORFAN [Concomitant]
     Dosage: UNK UKN, UNK
     Dates: start: 201310

REACTIONS (2)
  - Depression [Recovered/Resolved]
  - Sciatica [Unknown]
